FAERS Safety Report 8969107 (Version 2)
Quarter: 2014Q2

REPORT INFORMATION
  Report Type: Report from Study
  Country: BE (occurrence: BE)
  Receive Date: 20121217
  Receipt Date: 20131018
  Transmission Date: 20141212
  Serious: Yes (Life-Threatening, Hospitalization)
  Sender: FDA-Public Use
  Company Number: BE-PFIZER INC-2012310969

PATIENT
  Age: 59 Year
  Sex: Male

DRUGS (55)
  1. SOLU-MEDROL [Suspect]
     Indication: PROPHYLAXIS AGAINST TRANSPLANT REJECTION
     Dosage: 40 MG, 1X/DAY
     Route: 042
     Dates: start: 20030826
  2. SOLU-MEDROL [Suspect]
     Dosage: 32 MG, 1X/DAY
     Route: 042
     Dates: start: 20030908, end: 20030909
  3. DACLIZUMAB [Suspect]
     Dosage: UNK
     Route: 042
  4. MYCOPHENOLATE MOFETIL [Suspect]
     Indication: PROPHYLAXIS AGAINST TRANSPLANT REJECTION
     Dosage: 500 MG, 2X/DAY
     Route: 048
     Dates: start: 20030826
  5. MYCOPHENOLATE MOFETIL [Suspect]
     Dosage: 500 MG, 4X/DAY
     Route: 048
     Dates: start: 20030909
  6. MYCOPHENOLATE MOFETIL [Suspect]
     Dosage: 500 MG, 2X/DAY
     Route: 048
     Dates: start: 20031219
  7. MYCOPHENOLATE MOFETIL [Suspect]
     Dosage: 500 MG, 4X/DAY
     Route: 048
     Dates: start: 20031229
  8. MYCOPHENOLATE MOFETIL [Suspect]
     Dosage: 500 MG, 3X/DAY
     Route: 048
     Dates: start: 20040227
  9. MYCOPHENOLATE MOFETIL [Suspect]
     Indication: PROPHYLAXIS AGAINST TRANSPLANT REJECTION
     Dosage: 1 G, 2X/DAY
     Route: 048
     Dates: start: 20030827
  10. MYCOPHENOLATE MOFETIL [Suspect]
     Dosage: 1 G, 2X/DAY
     Route: 042
     Dates: start: 20030829
  11. MYCOPHENOLATE MOFETIL [Suspect]
     Dosage: 500 MG, 2X/DAY
     Route: 048
     Dates: start: 20040131
  12. CYCLOSPORINE [Suspect]
     Indication: PROPHYLAXIS AGAINST TRANSPLANT REJECTION
     Dosage: 425 MG, 1X/DAY
     Route: 048
     Dates: start: 20030826
  13. CYCLOSPORINE [Suspect]
     Dosage: 300 MG, 2X/DAY
     Route: 048
     Dates: start: 20030827
  14. CYCLOSPORINE [Suspect]
     Dosage: 150 MG, 1X/DAY
     Route: 048
     Dates: start: 20030909
  15. CYCLOSPORINE [Suspect]
     Dosage: 75 MG, 2X/DAY
     Route: 048
     Dates: start: 20030920
  16. CYCLOSPORINE [Suspect]
     Dosage: 62.5 MG, 2X/DAY
     Route: 048
     Dates: start: 20050412
  17. CICLOSPORIN [Suspect]
     Indication: PROPHYLAXIS AGAINST TRANSPLANT REJECTION
     Dosage: 100 MG, 2X/DAY
     Route: 042
     Dates: start: 20030827
  18. CICLOSPORIN [Suspect]
     Dosage: 175 MG, 1X/DAY
     Route: 042
     Dates: start: 20030831
  19. CICLOSPORIN [Suspect]
     Dosage: 100 MG, 1X/DAY
     Route: 042
     Dates: start: 20030901
  20. CYCLOSPORINE [Suspect]
     Indication: PROPHYLAXIS AGAINST TRANSPLANT REJECTION
     Dosage: 75 MG, 2X/DAY
     Route: 048
     Dates: start: 20041008
  21. MEDROL [Concomitant]
     Indication: PROPHYLAXIS AGAINST TRANSPLANT REJECTION
     Dosage: 8 MG, 1X/DAY
     Route: 048
     Dates: start: 20030909
  22. MEDROL [Concomitant]
     Dosage: 4 MG, 1X/DAY
     Route: 048
     Dates: start: 20040223
  23. CLIRADON [Concomitant]
     Route: 048
  24. BACTRIM FORTE [Concomitant]
     Dosage: 400 MG, 1X/DAY
     Route: 048
     Dates: start: 20030830, end: 20030831
  25. BACTRIM FORTE [Concomitant]
     Dosage: 400 MG, 1X/DAY
     Route: 048
     Dates: start: 20030909, end: 20040223
  26. ZANTAC [Concomitant]
     Dosage: 100 MG, UNK
     Dates: start: 20030827
  27. CLEXANE [Concomitant]
     Dosage: 40 MG, UNK
     Dates: start: 20030827, end: 20030827
  28. SELDANE [Concomitant]
     Dosage: 400 MG, UNK
     Dates: start: 20030827
  29. XANAX [Concomitant]
     Dosage: 0.25 MG, UNK
     Dates: end: 20030909
  30. CYMEVENE [Concomitant]
     Dosage: 200 MG, 2X/DAY
     Route: 042
     Dates: start: 20030827
  31. CYMEVENE [Concomitant]
     Dosage: 1 G, 3X/DAY
     Route: 048
     Dates: start: 20030908, end: 20031215
  32. CYMEVENE [Concomitant]
     Dosage: 1 G, 3X/DAY
     Route: 048
     Dates: start: 20040221, end: 20040829
  33. CYMEVENE [Concomitant]
     Dosage: 400 MG, 2X/DAY
     Route: 042
     Dates: start: 20040131
  34. ACTRAPID [Concomitant]
     Dosage: UNK IU, UNK
     Route: 042
     Dates: start: 20030829, end: 20030910
  35. AMLOR [Concomitant]
     Dosage: 5 MG, 1X/DAY
     Route: 048
     Dates: start: 20030908, end: 20030911
  36. ASAFLOW [Concomitant]
     Dosage: 160 MG, 1X/DAY
     Route: 048
     Dates: start: 20030830, end: 20030831
  37. ASAFLOW [Concomitant]
     Dosage: 160 MG, 1X/DAY
     Route: 048
     Dates: start: 20030919
  38. BURINEX [Concomitant]
     Dosage: 6 ML, 1 HR
     Route: 042
     Dates: start: 20030828, end: 20030829
  39. CEDOCARD [Concomitant]
     Dosage: 2 MG, 1 HR
     Route: 042
     Dates: start: 20030827, end: 20030829
  40. CEFACIDAL [Concomitant]
     Dosage: 1 G, 1X/DAY
     Route: 042
     Dates: start: 20030826, end: 20030827
  41. CEFACIDAL [Concomitant]
     Dosage: 2 G, 4X/DAY
     Route: 048
     Dates: start: 20030828, end: 20030929
  42. COVERSYL [Concomitant]
     Dosage: 2 MG, 1X/DAY
     Route: 048
     Dates: start: 20030905
  43. COVERSYL [Concomitant]
     Dosage: 2 MG, 1X/DAY
     Route: 048
     Dates: start: 20031016
  44. COVERSYL [Concomitant]
     Dosage: 4 MG, 1X/DAY
     Route: 048
     Dates: start: 20030907
  45. DOBUTREX [Concomitant]
     Dosage: 1 ML, 1 HR
     Route: 042
     Dates: start: 20030828, end: 20030830
  46. GLURENORM ^BOEHRINGER^ [Concomitant]
     Dosage: 15 MG, 2X/DAY
     Route: 048
     Dates: start: 20031114
  47. LASIX [Concomitant]
     Dosage: 20 MG, 1X/DAY
     Route: 042
     Dates: start: 20030902
  48. LASIX [Concomitant]
     Dosage: 40 MG, 1X/DAY
     Route: 048
     Dates: start: 20030909, end: 20030911
  49. LIPITOR [Concomitant]
     Dosage: 20 MG, 1X/DAY
     Route: 048
     Dates: start: 20030921
  50. SELOZOK [Concomitant]
     Dosage: 50 MG, 1X/DAY
     Route: 048
     Dates: start: 20030909
  51. SELOKEN [Concomitant]
     Dosage: 100 MG, 1X/DAY
     Route: 042
     Dates: start: 20030826, end: 20030829
  52. SELOKEN [Concomitant]
     Dosage: 50 MG, 1X/DAY
     Route: 042
     Dates: start: 20030904
  53. SELOKEN [Concomitant]
     Dosage: 75 MG, 1X/DAY
     Route: 048
     Dates: start: 20030905
  54. SELOKEN [Concomitant]
     Dosage: 50 MG, 2X/DAY
     Route: 048
     Dates: start: 20030907, end: 20030909
  55. ZINACEF [Concomitant]
     Dosage: 750 MG, 3X/DAY
     Route: 042
     Dates: start: 20030829, end: 20030830

REACTIONS (4)
  - Myocardial infarction [Recovered/Resolved]
  - Cytomegalovirus infection [Recovered/Resolved]
  - Pneumonia pseudomonal [Recovered/Resolved]
  - Perirenal haematoma [Recovered/Resolved]
